FAERS Safety Report 4533780-5 (Version None)
Quarter: 2004Q4

REPORT INFORMATION
  Report Type: 
  Country: None (occurrence: None)
  Receive Date: 20041206
  Receipt Date: 20041019
  Transmission Date: 20050328
  Serious: No
  Sender: FDA-Public Use
  Company Number: USA041081650

PATIENT
  Age: 25 Year
  Sex: Female

DRUGS (3)
  1. CYMBALTA [Suspect]
     Indication: DEPRESSION
     Dosage: 60 MG
     Dates: start: 20041001
  2. NARCOTIC PAIN MEDS [Concomitant]
  3. LEXAPRO [Concomitant]

REACTIONS (5)
  - BALANCE DISORDER [None]
  - FALL [None]
  - MEMORY IMPAIRMENT [None]
  - ROAD TRAFFIC ACCIDENT [None]
  - SOMNOLENCE [None]
